FAERS Safety Report 24724665 (Version 1)
Quarter: 2024Q4

REPORT INFORMATION
  Report Type: Spontaneous
  Country: NL (occurrence: NL)
  Receive Date: 20241212
  Receipt Date: 20241212
  Transmission Date: 20250114
  Serious: Yes (Other)
  Sender: TEVA
  Company Number: None

PATIENT
  Age: 42 Year
  Sex: Female
  Weight: 66 kg

DRUGS (1)
  1. TAMSULOSIN [Suspect]
     Active Substance: TAMSULOSIN
     Indication: Atonic urinary bladder
     Dosage: 1 PIECE 1 X PER DAY;CAPSULE MGA / BRAND NAME NOT SPECIFIED
     Route: 048
     Dates: start: 20130301

REACTIONS (3)
  - Atonic urinary bladder [Recovered/Resolved]
  - Product substitution issue [Unknown]
  - Condition aggravated [Recovered/Resolved]
